FAERS Safety Report 7109247-7 (Version None)
Quarter: 2010Q4

REPORT INFORMATION
  Report Type: 
  Country: None (occurrence: None)
  Receive Date: 20101117
  Receipt Date: 20101025
  Transmission Date: 20110411
  Serious: Yes (Hospitalization)
  Sender: FDA-Public Use
  Company Number: GB-AMGEN-QUU442273

PATIENT

DRUGS (5)
  1. ETANERCEPT [Suspect]
     Indication: RHEUMATOID ARTHRITIS
     Route: 058
     Dates: start: 20100517, end: 20100823
  2. ETANERCEPT [Suspect]
     Dosage: 40 MG, QWK
     Route: 058
     Dates: start: 20100517, end: 20100823
  3. FOLIC ACID [Concomitant]
  4. AMOXICILLIN [Concomitant]
  5. METHOTREXATE [Concomitant]

REACTIONS (3)
  - ABDOMINAL MASS [None]
  - ABDOMINAL PAIN [None]
  - PLEURAL EFFUSION [None]
